FAERS Safety Report 8138494-0 (Version None)
Quarter: 2012Q1

REPORT INFORMATION
  Report Type: 
  Country: None (occurrence: None)
  Receive Date: 20120215
  Receipt Date: 20120208
  Transmission Date: 20120608
  Serious: Yes (Hospitalization)
  Sender: FDA-Public Use
  Company Number: IT-PFIZER INC-2012036458

PATIENT
  Age: 87 Year
  Sex: Male

DRUGS (11)
  1. DOXYCYCLINE HYCLATE [Suspect]
     Dosage: 200 MG DAILY
     Route: 048
     Dates: start: 20111015, end: 20111017
  2. MONOKET [Concomitant]
  3. CARVEDILOL [Concomitant]
  4. PANTOPRAZOLE [Concomitant]
  5. ROSUVASTATIN CALCIUM [Concomitant]
  6. TARGOCID [Suspect]
     Indication: BRONCHOPNEUMONIA
     Dosage: 400 MG DAILY
     Route: 042
     Dates: start: 20111015, end: 20111016
  7. WARFARIN SODIUM [Concomitant]
  8. CALCIUM CARBONATE/COLECALCIFEROL [Concomitant]
  9. LASIX [Concomitant]
  10. FOSAMAX [Concomitant]
  11. MICARDIS [Concomitant]
     Dosage: 80 MG

REACTIONS (2)
  - PRURITUS [None]
  - ERYTHEMA [None]
